FAERS Safety Report 10301661 (Version 2)
Quarter: 2014Q3

REPORT INFORMATION
  Report Type: Spontaneous
  Country: US (occurrence: US)
  Receive Date: 20140714
  Receipt Date: 20140714
  Transmission Date: 20150326
  Serious: Yes (Hospitalization, Other)
  Sender: FDA-Public Use
  Company Number: US-009507513-2010SP056522

PATIENT
  Sex: Female
  Weight: 88.45 kg

DRUGS (2)
  1. NUVARING [Suspect]
     Active Substance: ETHINYL ESTRADIOL\ETONOGESTREL
     Indication: CONTRACEPTION
     Dates: start: 200501, end: 200503
  2. NUVARING [Suspect]
     Active Substance: ETHINYL ESTRADIOL\ETONOGESTREL
     Indication: OVARIAN CYST

REACTIONS (15)
  - Irritability [Unknown]
  - Intervertebral disc protrusion [Unknown]
  - Thalamic infarction [Recovered/Resolved]
  - Headache [Not Recovered/Not Resolved]
  - Central pain syndrome [Unknown]
  - Vascular occlusion [Unknown]
  - Cerebellar haemorrhage [Recovered/Resolved]
  - Heart rate irregular [Unknown]
  - Ketonuria [Unknown]
  - Influenza [Unknown]
  - Benign intracranial hypertension [Not Recovered/Not Resolved]
  - Intracranial venous sinus thrombosis [Recovered/Resolved]
  - Chest pain [Unknown]
  - Anxiety [Unknown]
  - Depression [Unknown]

NARRATIVE: CASE EVENT DATE: 2005
